FAERS Safety Report 6768126-5 (Version None)
Quarter: 2010Q2

REPORT INFORMATION
  Report Type: 
  Country: None (occurrence: None)
  Receive Date: 20100614
  Receipt Date: 20100607
  Transmission Date: 20101027
  Serious: Yes (Other)
  Sender: FDA-Public Use
  Company Number: CA-ASTRAZENECA-2010SE26915

PATIENT
  Sex: Female

DRUGS (2)
  1. CRESTOR [Suspect]
     Route: 048
  2. NIASPAN [Concomitant]

REACTIONS (5)
  - CARDIAC FAILURE [None]
  - CHEST PAIN [None]
  - HYPOTENSION [None]
  - MUSCULAR WEAKNESS [None]
  - RENAL IMPAIRMENT [None]
